FAERS Safety Report 4401191-9 (Version None)
Quarter: 2004Q3

REPORT INFORMATION
  Report Type: 
  Country: None (occurrence: None)
  Receive Date: 20040907
  Receipt Date: 20031212
  Transmission Date: 20050211
  Serious: No
  Sender: FDA-Public Use
  Company Number: US-BRISTOL-MYERS SQUIBB COMPANY-12457487

PATIENT
  Sex: Female

DRUGS (7)
  1. COUMADIN [Suspect]
     Indication: THROMBOSIS
     Route: 048
     Dates: start: 20030901
  2. HEPARIN [Concomitant]
     Indication: THROMBOSIS
     Dates: start: 20030501, end: 20030901
  3. LASIX [Concomitant]
     Indication: PAIN IN EXTREMITY
  4. THYROID TAB [Concomitant]
  5. SUCRALFATE [Concomitant]
  6. ACIPHEX [Concomitant]
  7. POTASSIUM [Concomitant]

REACTIONS (1)
  - OEDEMA [None]
